FAERS Safety Report 17540901 (Version 1)
Quarter: 2020Q1

REPORT INFORMATION
  Report Type: Spontaneous
  Country: GB (occurrence: GB)
  Receive Date: 20200313
  Receipt Date: 20200313
  Transmission Date: 20200409
  Serious: Yes (Hospitalization)
  Sender: FDA-Public Use
  Company Number: GB-ALLERGAN-2011160US

PATIENT

DRUGS (6)
  1. ENALAPRIL [Suspect]
     Active Substance: ENALAPRIL
     Indication: EXPOSURE DURING PREGNANCY
     Route: 063
  2. DALTEPARIN [Suspect]
     Active Substance: DALTEPARIN
     Indication: EXPOSURE DURING PREGNANCY
     Route: 064
  3. CITALOPRAM HYDROBROMIDE - BP [Suspect]
     Active Substance: CITALOPRAM HYDROBROMIDE
     Indication: EXPOSURE DURING PREGNANCY
     Route: 064
  4. FOLIC ACID. [Suspect]
     Active Substance: FOLIC ACID
     Indication: EXPOSURE DURING PREGNANCY
     Route: 064
  5. ASPIRIN. [Suspect]
     Active Substance: ASPIRIN
     Indication: EXPOSURE DURING PREGNANCY
     Route: 064
  6. RAMIPRIL. [Suspect]
     Active Substance: RAMIPRIL
     Indication: EXPOSURE DURING PREGNANCY
     Route: 064

REACTIONS (4)
  - Small for dates baby [Unknown]
  - Meconium stain [Unknown]
  - Foetal distress syndrome [Unknown]
  - Pregnancy [Unknown]
